FAERS Safety Report 14115755 (Version 2)
Quarter: 2018Q3

REPORT INFORMATION
  Report Type: Spontaneous
  Country: US (occurrence: US)
  Receive Date: 20171023
  Receipt Date: 20180924
  Transmission Date: 20181010
  Serious: No
  Sender: FDA-Public Use
  Company Number: US-ALLERGAN-1734263US

PATIENT
  Sex: Female
  Weight: 47.62 kg

DRUGS (7)
  1. LINZESS [Suspect]
     Active Substance: LINACLOTIDE
     Indication: BOWEL MOVEMENT IRREGULARITY
     Dosage: 290 ?G, QD
     Route: 048
     Dates: start: 201707
  2. KONSYL [Concomitant]
     Active Substance: PSYLLIUM HUSK
     Dosage: UNK UNK, BID
     Route: 048
  3. LINZESS [Suspect]
     Active Substance: LINACLOTIDE
     Dosage: UNK, EVERY OTHER DAY
     Route: 048
  4. PHAZYME [Concomitant]
     Active Substance: DIMETHICONE 410
     Dosage: UNK
     Route: 048
  5. RESTORA [Concomitant]
     Dosage: UNK
     Route: 048
  6. MIRALAX [Concomitant]
     Active Substance: POLYETHYLENE GLYCOL 3350
     Dosage: UNK UNK, BID
     Route: 048
  7. LINZESS [Suspect]
     Active Substance: LINACLOTIDE
     Dosage: 72 ?G, QD
     Route: 048

REACTIONS (3)
  - Inappropriate schedule of drug administration [Unknown]
  - Product use in unapproved indication [Unknown]
  - Diarrhoea [Recovered/Resolved]

NARRATIVE: CASE EVENT DATE: 2017
